FAERS Safety Report 16355379 (Version 1)
Quarter: 2019Q2

REPORT INFORMATION
  Report Type: Report from Study
  Country: None (occurrence: US)
  Receive Date: 20190525
  Receipt Date: 20190525
  Transmission Date: 20190711
  Serious: Yes (Other)
  Sender: FDA-Public Use
  Company Number: US-ABBVIE-19K-163-2789941-00

PATIENT
  Age: 48 Year
  Sex: Female

DRUGS (2)
  1. HUMIRA [Suspect]
     Active Substance: ADALIMUMAB
     Indication: PSORIASIS
     Route: 058
     Dates: start: 2016, end: 2018
  2. HUMIRA [Suspect]
     Active Substance: ADALIMUMAB
     Indication: CROHN^S DISEASE
     Dosage: THREE 40 MG DOSES SO FAR
     Route: 058
     Dates: start: 2019

REACTIONS (6)
  - Meningioma [Recovered/Resolved]
  - Drug tolerance increased [Recovered/Resolved with Sequelae]
  - Psoriasis [Not Recovered/Not Resolved]
  - Intentional product misuse [Recovered/Resolved]
  - Psoriasis [Recovered/Resolved with Sequelae]
  - Drug ineffective [Not Recovered/Not Resolved]

NARRATIVE: CASE EVENT DATE: 20160405
